FAERS Safety Report 10183263 (Version 1)
Quarter: 2014Q2

REPORT INFORMATION
  Report Type: Spontaneous
  Country: IT (occurrence: IT)
  Receive Date: 20140520
  Receipt Date: 20140520
  Transmission Date: 20141212
  Serious: Yes (Other)
  Sender: FDA-Public Use
  Company Number: IT-JNJFOC-20140503588

PATIENT
  Age: 84 Year
  Sex: Male

DRUGS (2)
  1. ZYTIGA [Suspect]
     Indication: PROSTATE CANCER
     Route: 048
     Dates: start: 20131205
  2. ZYTIGA [Suspect]
     Indication: PROSTATE CANCER
     Route: 048
     Dates: end: 20140505

REACTIONS (3)
  - Asthenia [Not Recovered/Not Resolved]
  - Off label use [Unknown]
  - Incorrect dose administered [Unknown]
